FAERS Safety Report 10004300 (Version 2)
Quarter: 2014Q2

REPORT INFORMATION
  Report Type: Spontaneous
  Country: US (occurrence: US)
  Receive Date: 20140312
  Receipt Date: 20140611
  Transmission Date: 20141212
  Serious: No
  Sender: FDA-Public Use
  Company Number: US-INCYTE CORPORATION-2014IN000342

PATIENT
  Age: 77 Year
  Sex: Female

DRUGS (5)
  1. JAKAFI [Suspect]
     Indication: MYELOFIBROSIS
     Dosage: 15 MG, BID
     Route: 048
     Dates: start: 201401
  2. ATENOLOL [Concomitant]
     Dosage: 25 MG, QD
  3. LEVOTHYROXINE [Concomitant]
     Dosage: 75 MCG, QD
  4. MULTIVITAMINS [Concomitant]
  5. PROBIOTICS [Concomitant]

REACTIONS (2)
  - Hypoaesthesia [Unknown]
  - Anaemia [Unknown]
